FAERS Safety Report 6771633-2 (Version None)
Quarter: 2010Q2

REPORT INFORMATION
  Report Type: 
  Country: None (occurrence: None)
  Receive Date: 20100616
  Receipt Date: 20100608
  Transmission Date: 20101027
  Serious: Yes (Other)
  Sender: FDA-Public Use
  Company Number: PHHY2010ZA37113

PATIENT

DRUGS (1)
  1. TEGRETOL-XR [Suspect]
     Dosage: 200 MG, UNK
     Route: 048

REACTIONS (4)
  - ANGIOEDEMA [None]
  - OEDEMA MOUTH [None]
  - STEVENS-JOHNSON SYNDROME [None]
  - SWELLING FACE [None]
